FAERS Safety Report 24908223 (Version 2)
Quarter: 2025Q1

REPORT INFORMATION
  Report Type: Spontaneous
  Country: ES (occurrence: ES)
  Receive Date: 20250131
  Receipt Date: 20250226
  Transmission Date: 20250409
  Serious: Yes (Other)
  Sender: CHATTEM
  Company Number: ES-OPELLA-2025OHG002712

PATIENT
  Sex: Male
  Weight: 72 kg

DRUGS (1)
  1. LEVOCETIRIZINE DIHYDROCHLORIDE [Suspect]
     Active Substance: LEVOCETIRIZINE DIHYDROCHLORIDE
     Indication: Hypersensitivity
     Dosage: 1 TABLET EVERY 24 HOURS, THREE DAYS, SUSPENDED DUE TO ADVERSE REACTION
     Route: 048
     Dates: start: 20250105, end: 20250108

REACTIONS (3)
  - Vomiting [Recovered/Resolved]
  - Tremor [Recovered/Resolved]
  - Seizure [Recovered/Resolved]

NARRATIVE: CASE EVENT DATE: 20250106
